FAERS Safety Report 8151746-3 (Version None)
Quarter: 2012Q1

REPORT INFORMATION
  Report Type: 
  Country: None (occurrence: None)
  Receive Date: 20120221
  Receipt Date: 20120208
  Transmission Date: 20120608
  Serious: No
  Sender: FDA-Public Use
  Company Number: US-BIOGENIDEC-2011BI012345

PATIENT
  Sex: Female

DRUGS (2)
  1. TYSABRI [Suspect]
     Indication: MULTIPLE SCLEROSIS
     Route: 042
     Dates: start: 20090918
  2. AMPYRA [Concomitant]

REACTIONS (15)
  - FALL [None]
  - BLOOD URINE PRESENT [None]
  - POOR VENOUS ACCESS [None]
  - POLLAKIURIA [None]
  - MULTIPLE SCLEROSIS RELAPSE [None]
  - VISUAL IMPAIRMENT [None]
  - FEELING ABNORMAL [None]
  - LOSS OF CONSCIOUSNESS [None]
  - MOBILITY DECREASED [None]
  - DYSURIA [None]
  - VISION BLURRED [None]
  - URINARY TRACT INFECTION [None]
  - TREMOR [None]
  - DIARRHOEA [None]
  - BRONCHITIS [None]
